FAERS Safety Report 18922241 (Version 1)
Quarter: 2021Q1

REPORT INFORMATION
  Report Type: Spontaneous
  Country: US (occurrence: US)
  Receive Date: 20210221
  Receipt Date: 20210221
  Transmission Date: 20210420
  Serious: No
  Sender: FDA-Public Use
  Company Number: None

PATIENT
  Age: 38 Year
  Sex: Female
  Weight: 65.25 kg

DRUGS (2)
  1. DEXTROAMPHET SACCHARAT, AMPHET ASPARTATE, DEXTROAMPHET SULFATE AND AMPHET SULFAT [Suspect]
     Active Substance: AMPHETAMINE ASPARTATE\AMPHETAMINE SULFATE\DEXTROAMPHETAMINE SACCHARATE\DEXTROAMPHETAMINE SULFATE
     Indication: ATTENTION DEFICIT HYPERACTIVITY DISORDER
     Dosage: ?          QUANTITY:100 TABLET(S);OTHER FREQUENCY:1/2 TABLET 4X/DAY;?
     Route: 048
     Dates: start: 20210219, end: 20210221
  2. PRE?NATAL (NOT PREGNANT, PREPPING FOR IVF) [Concomitant]

REACTIONS (8)
  - Depressed level of consciousness [None]
  - Disturbance in attention [None]
  - Cardiac flutter [None]
  - Headache [None]
  - Product substitution issue [None]
  - Muscle tightness [None]
  - Feeling jittery [None]
  - Feeling abnormal [None]

NARRATIVE: CASE EVENT DATE: 20210219
